FAERS Safety Report 6875339-0 (Version None)
Quarter: 2010Q3

REPORT INFORMATION
  Report Type: 
  Country: None (occurrence: None)
  Receive Date: 20100727
  Receipt Date: 20070522
  Transmission Date: 20110219
  Serious: Yes (Hospitalization, Other)
  Sender: FDA-Public Use
  Company Number: US-PFIZER INC-2006149812

PATIENT
  Sex: Female

DRUGS (3)
  1. CELEBREX [Suspect]
     Indication: OSTEOARTHRITIS
     Route: 048
     Dates: start: 19990101
  2. CELEBREX [Suspect]
     Indication: PAIN
  3. VIOXX [Suspect]
     Route: 048
     Dates: start: 19990520

REACTIONS (1)
  - MYOCARDIAL INFARCTION [None]
